FAERS Safety Report 11642170 (Version 1)
Quarter: 2015Q4

REPORT INFORMATION
  Report Type: Spontaneous
  Country: US (occurrence: US)
  Receive Date: 20151019
  Receipt Date: 20151019
  Transmission Date: 20160304
  Serious: Yes (Hospitalization)
  Sender: FDA-Public Use
  Company Number: PHHY2015US124242

PATIENT
  Age: 68 Year
  Sex: Male

DRUGS (2)
  1. CISPLATIN. [Suspect]
     Active Substance: CISPLATIN
     Indication: INTRAPERITONEAL HYPERTHERMIC CHEMOTHERAPY
     Dosage: 4 MG/L, UNK
     Route: 065
  2. DOXORUBICIN [Suspect]
     Active Substance: DOXORUBICIN
     Indication: INTRAPERITONEAL HYPERTHERMIC CHEMOTHERAPY
     Dosage: 1 MG/L, UNK
     Route: 065

REACTIONS (1)
  - Ureteric stenosis [Unknown]
